FAERS Safety Report 11962264 (Version 1)
Quarter: 2016Q1

REPORT INFORMATION
  Report Type: Spontaneous
  Country: DE (occurrence: DE)
  Receive Date: 20160126
  Receipt Date: 20160126
  Transmission Date: 20160526
  Serious: Yes (Hospitalization, Other)
  Sender: FDA-Public Use
  Company Number: DE-WATSON-2016-00883

PATIENT
  Age: 1 Day
  Sex: Male
  Weight: 3 kg

DRUGS (8)
  1. MEPTID                             /00633901/ [Concomitant]
     Indication: PAIN
     Dosage: 100 MG, DAILY
     Route: 064
     Dates: start: 20150915, end: 20150915
  2. METOPROLOL (UNKNOWN) [Suspect]
     Active Substance: METOPROLOL
     Indication: HYPERTENSION
     Dosage: 142.5 MG, DAILY
     Route: 064
     Dates: start: 20150105, end: 20150915
  3. EUTHYROX [Concomitant]
     Active Substance: LEVOTHYROXINE SODIUM
     Indication: AUTOIMMUNE THYROIDITIS
     Dosage: 200 MCG, DAILY
     Route: 064
     Dates: start: 20150105, end: 20150915
  4. CITALOPRAM [Suspect]
     Active Substance: CITALOPRAM HYDROBROMIDE
     Indication: DEPRESSION
     Dosage: 40 MG, DAILY
     Route: 064
     Dates: start: 20150105, end: 20150915
  5. AMITRIPTYLINE [Suspect]
     Active Substance: AMITRIPTYLINE
     Indication: DEPRESSION
     Dosage: 75 MG, DAILY
     Route: 064
     Dates: start: 20150105, end: 20150915
  6. BUSCOPAN [Concomitant]
     Active Substance: BUTYLSCOPOLAMINE BROMIDE
     Indication: PAIN
     Dosage: 40 MG, DAILY
     Route: 064
     Dates: start: 20150915, end: 20150915
  7. THYBON [Concomitant]
     Indication: AUTOIMMUNE THYROIDITIS
     Dosage: 20 MCG, DAILY
     Route: 064
     Dates: start: 20150105, end: 20150915
  8. FOLIC ACID. [Concomitant]
     Active Substance: FOLIC ACID
     Indication: PROPHYLAXIS OF NEURAL TUBE DEFECT
     Dosage: UNK, UNKNOWN
     Route: 064

REACTIONS (8)
  - Infantile apnoea [Recovered/Resolved]
  - Drug withdrawal syndrome neonatal [Recovered/Resolved]
  - Foetal exposure during pregnancy [Recovered/Resolved]
  - Hyperbilirubinaemia neonatal [Recovered/Resolved]
  - Bradycardia [Recovered/Resolved]
  - Agitation neonatal [Recovered/Resolved]
  - Respiratory disorder neonatal [Recovered/Resolved]
  - Hypertonia [Recovered/Resolved]

NARRATIVE: CASE EVENT DATE: 20150915
